FAERS Safety Report 8581470-4 (Version None)
Quarter: 2012Q3

REPORT INFORMATION
  Report Type: 
  Country: None (occurrence: None)
  Receive Date: 20120809
  Receipt Date: 20111104
  Transmission Date: 20120928
  Serious: Yes (Death, Hospitalization)
  Sender: FDA-Public Use
  Company Number: US-PFIZER INC-2011270761

PATIENT
  Age: 53 Year
  Sex: Male

DRUGS (2)
  1. DILTIAZEM HCL [Suspect]
     Dosage: 120 MG, UNK
     Route: 065
  2. PROPRANOLOL HCL [Suspect]
     Dosage: 20 MG, UNK
     Route: 065

REACTIONS (6)
  - OVERDOSE [None]
  - MULTI-ORGAN FAILURE [None]
  - BRADYCARDIA [None]
  - CARDIAC ARREST [None]
  - HYPOTENSION [None]
  - CARDIOGENIC SHOCK [None]
